FAERS Safety Report 15651953 (Version 5)
Quarter: 2019Q2

REPORT INFORMATION
  Report Type: Spontaneous
  Country: AU (occurrence: AU)
  Receive Date: 20181123
  Receipt Date: 20190611
  Transmission Date: 20190711
  Serious: Yes (Disabling, Other)
  Sender: FDA-Public Use
  Company Number: AU-PFIZER INC-2018410923

PATIENT
  Age: 38 Year
  Sex: Female
  Weight: 76 kg

DRUGS (33)
  1. SOMAVERT [Suspect]
     Active Substance: PEGVISOMANT
     Indication: PITUITARY TUMOUR BENIGN
     Dosage: 20 MG, DAILY
     Route: 058
     Dates: start: 20180726, end: 20181027
  2. DIABEX [Concomitant]
     Active Substance: METFORMIN HYDROCHLORIDE
     Dosage: 1 TABLET, EXTENDED RELEASE 3X/DAY
  3. MAGNESIUM CHLORIDE. [Concomitant]
     Active Substance: MAGNESIUM CHLORIDE
     Dosage: 1 INJECTION ONCE A MONTH
  4. NEO B12 [Concomitant]
     Active Substance: HYDROXOCOBALAMIN
     Dosage: 1 UNK, UNK
  5. PATANOL [Concomitant]
     Active Substance: OLOPATADINE HYDROCHLORIDE
     Dosage: 2 DROPS , 2X/DAY INTO BOTH EYES
  6. LAMICTAL [Concomitant]
     Active Substance: LAMOTRIGINE
     Dosage: UNK
  7. CARMELLOSE SODIUM [Concomitant]
     Active Substance: CARBOXYMETHYLCELLULOSE SODIUM
     Dosage: 2 DROPS EACH EYE EVERY 2 HOURS
  8. DYMISTA [Concomitant]
     Active Substance: AZELASTINE HYDROCHLORIDE\FLUTICASONE PROPIONATE
     Dosage: 1 SPRAY ECAH NOSTRIL TWICE A DAY, 2X/DAY
  9. ELOCON [Concomitant]
     Active Substance: MOMETASONE FUROATE
     Dosage: LOTION APPLY A FEW DROP TO SCALP
  10. PANAMAX CO [Concomitant]
     Dosage: 2 TABLET, 4X/DAY AS NEEDED (2 QID/PRN)
  11. EPILIM [Concomitant]
     Active Substance: VALPROATE SODIUM
     Dosage: ENTERIC COATED TABLET 1 TABLET 1 DAILY FOR 4 DAYS THEN 2 DAILY
  12. GENTEAL MODERATE TO SEVERE GEL DROPS [Concomitant]
     Active Substance: CARBOXYMETHYLCELLULOSE SODIUM\HYPROMELLOSES
     Dosage: 1-2 DROPS BEFORE BED
  13. NASONEX [Concomitant]
     Active Substance: MOMETASONE FUROATE
     Dosage: 2 SPRAYS ECAH NOSTRIL ONCE DAILY
  14. CANESORAL COMBI PAK [Concomitant]
     Dosage: 150MG; 1 % SET, 1 CAPSULE
  15. BACLOFEN. [Concomitant]
     Active Substance: BACLOFEN
     Dosage: 4 TABLETS, BEFORE BED
  16. DIAMICRON [Concomitant]
     Active Substance: GLICLAZIDE
     Dosage: 1 TABLET, 2X/DAY
  17. KENACOMBIN [Concomitant]
     Dosage: APPLY THREE TIMES A DAY P.R.N.
  18. RIVOTRIL [Concomitant]
     Active Substance: CLONAZEPAM
     Dosage: 1 TABLET, IN THE EVENING
  19. LANTUS XR [Concomitant]
     Active Substance: INSULIN GLARGINE
     Dosage: 10 IU, DAILY
  20. DORYX [DOXYCYCLINE HYCLATE] [Concomitant]
     Dosage: 1 CAPSULE, DAILY
  21. GENTEAL HA [Concomitant]
     Dosage: 2 DROPS, AS NEEDED
  22. HYPNODORM [Concomitant]
     Dosage: 1 TABLET, AS NEEDED
  23. SOMAVERT [Suspect]
     Active Substance: PEGVISOMANT
     Indication: ACROMEGALY
  24. DUAC [Concomitant]
     Active Substance: BENZOYL PEROXIDE\CLINDAMYCIN PHOSPHATE
     Dosage: APPLY DAILY
  25. TENORMIN [Concomitant]
     Active Substance: ATENOLOL
     Dosage: HALF  A TABLET DAILY
  26. VITAMIN D3 [Concomitant]
     Active Substance: CHOLECALCIFEROL
     Dosage: 1 INJECTION YEARLY
  27. SYSTANE BALANCE [Concomitant]
     Active Substance: PROPYLENE GLYCOL
     Dosage: 2 DROPS INTO BOTH EYES , 2X/DAY
  28. CHLORSIG [Concomitant]
     Active Substance: CHLORAMPHENICOL
     Dosage: APPLY 1 CM TO BOTH EYES EVERY 3 DAYS FOR 3 DAYS
  29. MEGAFOL [Concomitant]
     Active Substance: FOLIC ACID
     Dosage: 1 TAB, MANE
  30. OPTIVE [Concomitant]
     Active Substance: CARBOXYMETHYLCELLULOSE SODIUM\GLYCERIN
     Dosage: 1-2 DROPS AS NEEDED
  31. ZYPREXA [Concomitant]
     Active Substance: OLANZAPINE
     Dosage: 3 DF, NOCTE
  32. VITA POS [Concomitant]
     Active Substance: VITAMIN A PALMITATE
     Dosage: APPLY AT NIGHT
  33. FORXIGA [Concomitant]
     Active Substance: DAPAGLIFLOZIN
     Dosage: 20 MG, DAILY

REACTIONS (11)
  - Asthenia [Unknown]
  - Liver function test increased [Recovering/Resolving]
  - Dry mouth [Recovering/Resolving]
  - Blood glucose increased [Unknown]
  - Pain [Recovering/Resolving]
  - Fatigue [Recovering/Resolving]
  - Eye pain [Recovering/Resolving]
  - Photophobia [Recovering/Resolving]
  - Feeding disorder [Recovering/Resolving]
  - Dry eye [Recovering/Resolving]
  - Headache [Recovering/Resolving]

NARRATIVE: CASE EVENT DATE: 20180726
